FAERS Safety Report 6029052-2 (Version None)
Quarter: 2009Q1

REPORT INFORMATION
  Report Type: 
  Country: None (occurrence: None)
  Receive Date: 20090106
  Receipt Date: 20081229
  Transmission Date: 20090719
  Serious: Yes (Hospitalization, Other)
  Sender: FDA-Public Use
  Company Number: US-ELI_LILLY_AND_COMPANY-US200809005158

PATIENT
  Sex: Female
  Weight: 59.864 kg

DRUGS (7)
  1. FORTEO [Suspect]
     Indication: OSTEOPOROSIS
     Dosage: 20 UG, DAILY (1/D)
     Dates: start: 20080509, end: 20080928
  2. PLAVIX [Concomitant]
  3. OMEPRAZOLE [Concomitant]
  4. SANCTURA [Concomitant]
  5. LEVOXYL [Concomitant]
  6. AVALIDE [Concomitant]
  7. VITAMINS NOS [Concomitant]

REACTIONS (6)
  - FEBRILE NEUTROPENIA [None]
  - GASTRITIS [None]
  - GASTROINTESTINAL TOXICITY [None]
  - OESOPHAGITIS [None]
  - PANCYTOPENIA [None]
  - SMALL CELL LUNG CANCER STAGE UNSPECIFIED [None]
